FAERS Safety Report 7714141-4 (Version None)
Quarter: 2011Q3

REPORT INFORMATION
  Report Type: 
  Country: None (occurrence: None)
  Receive Date: 20110829
  Receipt Date: 20110823
  Transmission Date: 20111222
  Serious: Yes (Hospitalization)
  Sender: FDA-Public Use
  Company Number: US-BIOGENIDEC-2011BI023803

PATIENT
  Age: 35 Year
  Sex: Male

DRUGS (6)
  1. FLOXIN [Concomitant]
  2. TYSABRI [Suspect]
     Indication: MULTIPLE SCLEROSIS
     Route: 042
     Dates: start: 20071210
  3. BACLOFEN [Concomitant]
     Route: 048
  4. PROZAC [Concomitant]
     Indication: DEPRESSION
     Route: 048
  5. MULTI-VITAMIN [Concomitant]
     Route: 048
  6. VIAGRA [Concomitant]
     Route: 048

REACTIONS (5)
  - DEHYDRATION [None]
  - CONSTIPATION [None]
  - MULTIPLE SCLEROSIS RELAPSE [None]
  - DEPRESSION [None]
  - URINARY TRACT INFECTION [None]
